FAERS Safety Report 10152043 (Version 1)
Quarter: 2014Q2

REPORT INFORMATION
  Report Type: Spontaneous
  Country: US (occurrence: US)
  Receive Date: 20140505
  Receipt Date: 20140505
  Transmission Date: 20141212
  Serious: No
  Sender: FDA-Public Use
  Company Number: US-BRISTOL-MYERS SQUIBB COMPANY-20283974

PATIENT
  Sex: Male

DRUGS (3)
  1. METFORMIN HCL [Suspect]
  2. DAPAGLIFLOZIN [Suspect]
  3. INSULIN [Concomitant]

REACTIONS (1)
  - Circumstance or information capable of leading to medication error [Unknown]
